FAERS Safety Report 14695259 (Version 5)
Quarter: 2018Q3

REPORT INFORMATION
  Report Type: Report from Study
  Country: US (occurrence: US)
  Receive Date: 20180329
  Receipt Date: 20180917
  Transmission Date: 20181010
  Serious: Yes (Hospitalization)
  Sender: FDA-Public Use
  Company Number: US-ACTELION-A-US2018-169638

PATIENT
  Age: 68 Year
  Sex: Female
  Weight: 63.49 kg

DRUGS (3)
  1. UPTRAVI [Suspect]
     Active Substance: SELEXIPAG
     Indication: PULMONARY ARTERIAL HYPERTENSION
     Dosage: 800 MCG, BID
     Route: 048
     Dates: start: 201803
  2. UPTRAVI [Suspect]
     Active Substance: SELEXIPAG
     Dosage: 1200 MCG, BID
     Route: 048
  3. COUMADIN [Concomitant]
     Active Substance: WARFARIN SODIUM

REACTIONS (9)
  - Hypotension [Unknown]
  - Blood pressure increased [Recovered/Resolved]
  - Condition aggravated [Unknown]
  - Swelling [Unknown]
  - Pulmonary arterial hypertension [Unknown]
  - Cardiac failure [Unknown]
  - Fluid retention [Unknown]
  - Gastrointestinal disorder [Unknown]
  - Dyspnoea [Unknown]
